FAERS Safety Report 6872292-0 (Version None)
Quarter: 2010Q3

REPORT INFORMATION
  Report Type: 
  Country: None (occurrence: None)
  Receive Date: 20100723
  Receipt Date: 20100715
  Transmission Date: 20110219
  Serious: Yes (Other)
  Sender: FDA-Public Use
  Company Number: BR-ABBOTT-09P-020-0615292-00

PATIENT
  Sex: Male
  Weight: 74 kg

DRUGS (10)
  1. HUMIRA [Suspect]
     Indication: RHEUMATOID ARTHRITIS
     Route: 058
     Dates: start: 20090201, end: 20100401
  2. HUMIRA [Suspect]
     Indication: ANKYLOSING SPONDYLITIS
  3. CALCIUM/VITAMIN D (REPOCAL D) [Concomitant]
     Indication: BONE DISORDER
     Dosage: 2 PER DAY
     Route: 048
     Dates: start: 20090101
  4. METHOTREXATE [Concomitant]
     Indication: INFLAMMATION
     Dosage: 4 PER WEEK
     Route: 048
     Dates: start: 20090101
  5. METHOTREXATE [Concomitant]
     Indication: ANKYLOSING SPONDYLITIS
     Route: 048
  6. DICLOFENAC [Concomitant]
     Indication: PAIN
     Dosage: 1-2 PER DAY
     Route: 048
     Dates: start: 20090101
  7. OMEPRAZOLE [Concomitant]
     Indication: GASTRIC DISORDER
     Dosage: 1 PER DAY
     Route: 048
     Dates: start: 20090101
  8. CALCIUM [Concomitant]
     Indication: OSTEOPOROSIS
     Route: 048
  9. METICORTEN [Concomitant]
     Indication: ANKYLOSING SPONDYLITIS
     Route: 048
  10. DIPYRONE [Concomitant]
     Indication: PAIN
     Dosage: 40 DROPS DAILY

REACTIONS (10)
  - ARTHRALGIA [None]
  - CATARACT [None]
  - DIZZINESS [None]
  - HEADACHE [None]
  - INJECTION SITE PAIN [None]
  - INTRAOCULAR PRESSURE INCREASED [None]
  - SOMNOLENCE [None]
  - VISUAL IMPAIRMENT [None]
  - WAIST CIRCUMFERENCE INCREASED [None]
  - WEIGHT INCREASED [None]
